FAERS Safety Report 9265461 (Version 1)
Quarter: 2013Q2

REPORT INFORMATION
  Report Type: Spontaneous
  Country: ES (occurrence: ES)
  Receive Date: 20130501
  Receipt Date: 20130501
  Transmission Date: 20140414
  Serious: Yes (Other)
  Sender: FDA-Public Use
  Company Number: ES-PFIZER INC-2013118643

PATIENT
  Age: 50 Year
  Sex: Male

DRUGS (7)
  1. LYRICA [Suspect]
     Indication: PAIN
     Dosage: 75 MG, 1X/DAY
     Dates: start: 20121210, end: 201212
  2. LYRICA [Interacting]
     Dosage: 75 MG, 2X/DAY
     Dates: start: 201212, end: 201302
  3. LYRICA [Interacting]
     Dosage: 75 MG, 3X/DAY
     Dates: start: 20130216, end: 20130325
  4. DIAZEPAM [Interacting]
     Indication: MUSCLE CONTRACTURE
     Dosage: 5 MG, 3X/DAY
     Dates: start: 20130208, end: 2013
  5. DIAZEPAM [Interacting]
     Indication: MUSCLE RELAXANT THERAPY
  6. IBUPROFEN [Concomitant]
     Dosage: 600 MG/DAY
     Dates: start: 20130208
  7. KETOPROFEN [Concomitant]
     Dosage: 150 MG/DAY

REACTIONS (4)
  - Diplopia [Recovered/Resolved]
  - Strabismus [Recovered/Resolved]
  - VIth nerve paralysis [Recovered/Resolved]
  - Drug interaction [Recovered/Resolved]
